FAERS Safety Report 12130841 (Version 1)
Quarter: 2016Q1

REPORT INFORMATION
  Report Type: Spontaneous
  Country: US (occurrence: US)
  Receive Date: 20160301
  Receipt Date: 20160301
  Transmission Date: 20160526
  Serious: No
  Sender: FDA-Public Use
  Company Number: US-PFIZER INC-2016064255

PATIENT
  Sex: Female

DRUGS (1)
  1. SKELAXIN [Suspect]
     Active Substance: METAXALONE
     Dosage: UNK, 1X/DAY (AT NIGHT)

REACTIONS (6)
  - Intervertebral disc degeneration [Unknown]
  - Drug intolerance [Unknown]
  - Pain [Unknown]
  - Reaction to drug excipients [Unknown]
  - Intervertebral disc protrusion [Unknown]
  - Muscle spasms [Unknown]
